FAERS Safety Report 5626540-5 (Version None)
Quarter: 2008Q1

REPORT INFORMATION
  Report Type: 
  Country: None (occurrence: None)
  Receive Date: 20080214
  Receipt Date: 20080204
  Transmission Date: 20080703
  Serious: Yes (Other)
  Sender: FDA-Public Use
  Company Number: GB-WYE-H02585708

PATIENT
  Sex: Female

DRUGS (2)
  1. CORDARONE [Suspect]
     Dates: end: 20071201
  2. CORDARONE [Suspect]
     Dates: start: 20071201

REACTIONS (1)
  - ATRIAL FIBRILLATION [None]
